FAERS Safety Report 4530775-2 (Version None)
Quarter: 2004Q4

REPORT INFORMATION
  Report Type: 
  Country: None (occurrence: None)
  Receive Date: 20041129
  Receipt Date: 20040304
  Transmission Date: 20050328
  Serious: Yes (Life-Threatening, Disabling, Other)
  Sender: FDA-Public Use
  Company Number: US_0403101321

PATIENT
  Age: 32 Year
  Sex: Male
  Weight: 123 kg

DRUGS (8)
  1. ZYPREXA [Suspect]
     Indication: SCHIZOAFFECTIVE DISORDER
     Dosage: 20 MG/2 DAY
     Dates: start: 20030601, end: 20030926
  2. LEXAPRO [Concomitant]
  3. LIPITOR [Concomitant]
  4. ENALAPRIL [Concomitant]
  5. NEURONTIN [Concomitant]
  6. DEPAKOTE [Concomitant]
  7. CLONAZEPAM [Concomitant]
  8. AVANDAMET [Concomitant]

REACTIONS (3)
  - BLOOD CHOLESTEROL INCREASED [None]
  - BLOOD GLUCOSE INCREASED [None]
  - BLOOD TRIGLYCERIDES INCREASED [None]
